FAERS Safety Report 23500306 (Version 3)
Quarter: 2024Q2

REPORT INFORMATION
  Report Type: Spontaneous
  Country: BR (occurrence: BR)
  Receive Date: 20240208
  Receipt Date: 20240405
  Transmission Date: 20240715
  Serious: Yes (Hospitalization, Other)
  Sender: FDA-Public Use
  Company Number: BR-002147023-NVSC2024BR026437

PATIENT
  Sex: Female

DRUGS (3)
  1. DIOVAN [Suspect]
     Active Substance: VALSARTAN
     Indication: Blood pressure measurement
     Dosage: 160 MG (28 TABLETS)
     Route: 065
  2. AMIODARONE HYDROCHLORIDE [Concomitant]
     Active Substance: AMIODARONE HYDROCHLORIDE
     Indication: Product used for unknown indication
     Route: 065
  3. DAFLON [Concomitant]
     Indication: Product used for unknown indication
     Route: 065

REACTIONS (30)
  - Urinary retention [Unknown]
  - Arrhythmia [Unknown]
  - Nephrolithiasis [Not Recovered/Not Resolved]
  - Lacrimation increased [Not Recovered/Not Resolved]
  - Hyperhidrosis [Not Recovered/Not Resolved]
  - Rhinitis [Not Recovered/Not Resolved]
  - Nasal congestion [Not Recovered/Not Resolved]
  - Rhinorrhoea [Not Recovered/Not Resolved]
  - Peripheral swelling [Not Recovered/Not Resolved]
  - Joint swelling [Not Recovered/Not Resolved]
  - Visual impairment [Not Recovered/Not Resolved]
  - Myalgia [Not Recovered/Not Resolved]
  - Tinnitus [Not Recovered/Not Resolved]
  - Diarrhoea [Not Recovered/Not Resolved]
  - Dizziness [Not Recovered/Not Resolved]
  - Malaise [Recovered/Resolved]
  - Pain in extremity [Not Recovered/Not Resolved]
  - Discouragement [Not Recovered/Not Resolved]
  - Renal cyst [Not Recovered/Not Resolved]
  - Anxiety [Unknown]
  - Incorrect dose administered [Not Recovered/Not Resolved]
  - Swelling [Unknown]
  - Back pain [Unknown]
  - Blood pressure abnormal [Unknown]
  - Emotional disorder [Unknown]
  - Hypertension [Unknown]
  - Heart rate irregular [Unknown]
  - Haematuria [Unknown]
  - Varicose vein [Unknown]
  - Pain [Unknown]
